FAERS Safety Report 23943624 (Version 2)
Quarter: 2024Q2

REPORT INFORMATION
  Report Type: Spontaneous
  Country: EG (occurrence: EG)
  Receive Date: 20240606
  Receipt Date: 20240617
  Transmission Date: 20240715
  Serious: Yes (Hospitalization, Other)
  Sender: FDA-Public Use
  Company Number: EG-NOVOPROD-1228551

PATIENT
  Sex: Male
  Weight: 95 kg

DRUGS (2)
  1. INSULIN HUMAN [Suspect]
     Active Substance: INSULIN HUMAN
     Indication: Diabetes mellitus
     Dosage: 40 IU, QD(30IU +10 IU PM)
  2. VILDAGLUSE PLUS [Concomitant]
     Indication: Diabetes mellitus
     Dosage: ONCE DAILY
     Route: 048

REACTIONS (2)
  - Tendon rupture [Recovered/Resolved]
  - Localised infection [Recovered/Resolved]
